FAERS Safety Report 6591299-4 (Version None)
Quarter: 2010Q1

REPORT INFORMATION
  Report Type: 
  Country: None (occurrence: None)
  Receive Date: 20100219
  Receipt Date: 20100210
  Transmission Date: 20100710
  Serious: Yes (Other)
  Sender: FDA-Public Use
  Company Number: JP-PFIZER INC-2009250620

PATIENT
  Age: 79 Year
  Sex: Female
  Weight: 54.9 kg

DRUGS (8)
  1. CELECOX [Suspect]
     Indication: OSTEOARTHRITIS
     Dosage: 100 MG, 2X/DAY
     Route: 048
     Dates: start: 20080110, end: 20080123
  2. CELECOX [Suspect]
  3. TIOTROPIUM BROMIDE [Suspect]
     Indication: EMPHYSEMA
     Dosage: 1 DF, UID/1X/DAY
     Route: 055
     Dates: start: 20081215
  4. ANPLAG [Concomitant]
     Indication: PERIPHERAL ARTERIAL OCCLUSIVE DISEASE
     Dosage: UNK
     Dates: start: 20080324
  5. ZETIA [Concomitant]
     Indication: HYPERCHOLESTEROLAEMIA
     Dosage: UNK
     Dates: start: 20081201
  6. GASMOTIN [Concomitant]
     Indication: GASTRITIS
     Dosage: UNK
     Dates: start: 20090317
  7. LAFUTIDINE [Concomitant]
     Indication: GASTRIC ULCER
     Dosage: UNK
     Dates: start: 20071220, end: 20080110
  8. PARIET [Concomitant]
     Indication: GASTRIC ULCER
     Dosage: UNK
     Dates: start: 20080111, end: 20080123

REACTIONS (2)
  - CARDIAC FAILURE [None]
  - EMPHYSEMA [None]
